FAERS Safety Report 9814821 (Version 3)
Quarter: 2014Q2

REPORT INFORMATION
  Report Type: Spontaneous
  Country: US (occurrence: US)
  Receive Date: 20140113
  Receipt Date: 20140507
  Transmission Date: 20141212
  Serious: Yes (Hospitalization)
  Sender: FDA-Public Use
  Company Number: US-GLAXOSMITHKLINE-A1030595A

PATIENT
  Age: 69 Year
  Sex: Male

DRUGS (1)
  1. AVANDIA [Suspect]
     Indication: DIABETES MELLITUS
     Dosage: 4MG PER DAY
     Route: 048
     Dates: start: 20070417, end: 20070521

REACTIONS (4)
  - Cardiac failure congestive [Unknown]
  - Myocardial infarction [Unknown]
  - Congestive cardiomyopathy [Unknown]
  - Sick sinus syndrome [Unknown]
